FAERS Safety Report 9778793 (Version 2)
Quarter: 2014Q1

REPORT INFORMATION
  Report Type: Spontaneous
  Country: FR (occurrence: FR)
  Receive Date: 20131223
  Receipt Date: 20140117
  Transmission Date: 20141002
  Serious: Yes (Life-Threatening, Other)
  Sender: FDA-Public Use
  Company Number: FR-ABBVIE-13P-056-1182059-00

PATIENT
  Age: 63 Year
  Sex: Female
  Weight: 46 kg

DRUGS (5)
  1. HUMIRA [Suspect]
     Indication: ANKYLOSING SPONDYLITIS
     Dates: start: 200811, end: 201309
  2. HUMIRA [Suspect]
     Indication: COLITIS MICROSCOPIC
  3. IODINATED CONTRAST PRODUCT FOR CT SACN [Suspect]
     Indication: ABDOMINAL PAIN
     Route: 042
     Dates: start: 20130924
  4. LAROXYL [Concomitant]
     Indication: NEURALGIA
     Dosage: 2+2+10 DROPS PER DAY
     Dates: start: 201004
  5. RIVOTRIL [Concomitant]
     Indication: NEURALGIA
     Dates: start: 201004

REACTIONS (4)
  - Haemolytic uraemic syndrome [Recovered/Resolved]
  - Renal failure [Recovered/Resolved]
  - Anuria [Recovered/Resolved]
  - Abdominal pain [Recovered/Resolved]
